FAERS Safety Report 16636341 (Version 2)
Quarter: 2019Q4

REPORT INFORMATION
  Report Type: Spontaneous
  Country: US (occurrence: US)
  Receive Date: 20190726
  Receipt Date: 20191002
  Transmission Date: 20200122
  Serious: No
  Sender: FDA-Public Use
  Company Number: US-PFIZER INC-2019317824

PATIENT
  Age: 42 Year
  Sex: Female
  Weight: 91 kg

DRUGS (16)
  1. TAXOTERE [Suspect]
     Active Substance: DOCETAXEL
     Indication: BREAST CANCER METASTATIC
     Dosage: UNK, CYCLIC (EVERY 3 WEEKS FOR 5 CYCLES)
     Dates: start: 20100319, end: 20120618
  2. ADRIAMYCIN [Concomitant]
     Active Substance: DOXORUBICIN HYDROCHLORIDE
     Indication: CHEMOTHERAPY
     Dosage: UNK
     Dates: start: 20100316, end: 20120727
  3. ADRUCIL [Concomitant]
     Active Substance: FLUOROURACIL
     Indication: CHEMOTHERAPY
     Dosage: UNK
     Dates: start: 20100316, end: 20120727
  4. DOCETAXEL. [Suspect]
     Active Substance: DOCETAXEL
     Indication: BREAST CANCER METASTATIC
     Dosage: UNK, CYCLIC (EVERY 3 WEEKS FOR 5 CYCLES)
     Dates: start: 20100319, end: 20120618
  5. NEOSAR [Concomitant]
     Active Substance: CYCLOPHOSPHAMIDE
     Indication: CHEMOTHERAPY
     Dosage: UNK
  6. ABRAXANE [Concomitant]
     Active Substance: PACLITAXEL
     Indication: CHEMOTHERAPY
     Dosage: UNK
  7. NAVELBINE [Concomitant]
     Active Substance: VINORELBINE TARTRATE
     Indication: CHEMOTHERAPY
     Dosage: UNK
     Dates: start: 20100316, end: 20120727
  8. EFUDEX [Concomitant]
     Active Substance: FLUOROURACIL
     Indication: CHEMOTHERAPY
     Dosage: UNK
  9. TAXOL [Concomitant]
     Active Substance: PACLITAXEL
     Indication: CHEMOTHERAPY
     Dosage: UNK
     Dates: start: 20100316, end: 20120727
  10. PLATINOL AQ [Concomitant]
     Indication: CHEMOTHERAPY
     Dosage: UNK
     Dates: start: 20100316, end: 20120727
  11. CYTOXAN [Concomitant]
     Active Substance: CYCLOPHOSPHAMIDE
     Indication: CHEMOTHERAPY
     Dosage: UNK
     Dates: start: 20100316, end: 20120727
  12. MITOXANTRONE [Concomitant]
     Active Substance: MITOXANTRONE HYDROCHLORIDE
     Indication: CHEMOTHERAPY
     Dosage: UNK
  13. ALOCREST [Concomitant]
     Indication: CHEMOTHERAPY
     Dosage: UNK
  14. ZIAC [Concomitant]
     Active Substance: BISOPROLOL FUMARATE\HYDROCHLOROTHIAZIDE
     Dosage: UNK
     Dates: start: 2005, end: 2012
  15. DOXIL [Concomitant]
     Active Substance: DOXORUBICIN HYDROCHLORIDE
     Indication: CHEMOTHERAPY
     Dosage: UNK
  16. ZOLOFT [Concomitant]
     Active Substance: SERTRALINE HYDROCHLORIDE
     Dosage: UNK
     Dates: start: 2004, end: 2009

REACTIONS (5)
  - Madarosis [Not Recovered/Not Resolved]
  - Hair texture abnormal [Not Recovered/Not Resolved]
  - Alopecia [Not Recovered/Not Resolved]
  - Hair disorder [Not Recovered/Not Resolved]
  - Hair colour changes [Not Recovered/Not Resolved]

NARRATIVE: CASE EVENT DATE: 201303
